FAERS Safety Report 11050843 (Version 3)
Quarter: 2015Q4

REPORT INFORMATION
  Report Type: Spontaneous
  Country: US (occurrence: US)
  Receive Date: 20150421
  Receipt Date: 20151228
  Transmission Date: 20160304
  Serious: Yes (Life-Threatening, Hospitalization)
  Sender: FDA-Public Use
  Company Number: US-BAYER-2015-136007

PATIENT
  Age: 28 Year
  Sex: Female
  Weight: 116 kg

DRUGS (2)
  1. PARAGARD T 380A [Concomitant]
     Active Substance: COPPER
  2. MIRENA [Suspect]
     Active Substance: LEVONORGESTREL
     Indication: CONTRACEPTION
     Dosage: 20 MCG/24HR, CONT
     Route: 015
     Dates: start: 20101026, end: 20120919

REACTIONS (14)
  - Abdominal pain lower [None]
  - Anxiety [None]
  - General physical health deterioration [None]
  - Medical device pain [None]
  - Abasia [None]
  - Fluid intake reduced [None]
  - Injury [None]
  - Uterine perforation [None]
  - Feeding disorder [None]
  - Anhedonia [None]
  - Abdominal pain [None]
  - Emotional distress [None]
  - Female sexual dysfunction [None]
  - Nausea [None]

NARRATIVE: CASE EVENT DATE: 201011
